FAERS Safety Report 8035925-1 (Version None)
Quarter: 2012Q1

REPORT INFORMATION
  Report Type: 
  Country: None (occurrence: None)
  Receive Date: 20120111
  Receipt Date: 20111229
  Transmission Date: 20120608
  Serious: Yes (Hospitalization)
  Sender: FDA-Public Use
  Company Number: US-WATSON-2011-23043

PATIENT
  Age: 18 Year
  Sex: Female

DRUGS (1)
  1. ERYTHROMYCIN [Suspect]
     Indication: URINARY TRACT INFECTION
     Dosage: 4 G, DAILY X 24 DAYS
     Route: 048

REACTIONS (6)
  - OTOTOXICITY [None]
  - ABDOMINAL DISCOMFORT [None]
  - VOMITING [None]
  - EPIGASTRIC DISCOMFORT [None]
  - DIARRHOEA [None]
  - NAUSEA [None]
